FAERS Safety Report 17796152 (Version 1)
Quarter: 2020Q2

REPORT INFORMATION
  Report Type: Spontaneous
  Country: ES (occurrence: ES)
  Receive Date: 20200517
  Receipt Date: 20200517
  Transmission Date: 20200714
  Serious: Yes (Hospitalization)
  Sender: FDA-Public Use
  Company Number: NVSC2020ES130144

PATIENT
  Age: 97 Year
  Sex: Female

DRUGS (6)
  1. HYDROCHLOORTHIAZIDE [Suspect]
     Active Substance: HYDROCHLOROTHIAZIDE
     Indication: SUICIDE ATTEMPT
     Dosage: 25 MG, QD
     Route: 048
     Dates: start: 20190613
  2. SERC (BETAHISTINE HYDROCHLORIDE) [Interacting]
     Active Substance: BETAHISTINE HYDROCHLORIDE
     Indication: SUICIDE ATTEMPT
     Dosage: 240 MG, 1 TOTAL
     Route: 048
     Dates: start: 20190825, end: 20190825
  3. PARACETAMOL [Concomitant]
     Active Substance: ACETAMINOPHEN
     Indication: PRODUCT USED FOR UNKNOWN INDICATION
     Dosage: 1.3 G, QD
     Route: 048
     Dates: end: 20190825
  4. HYDROCHLOORTHIAZIDE [Interacting]
     Active Substance: HYDROCHLOROTHIAZIDE
     Dosage: 1 G, TOTAL
     Route: 048
     Dates: start: 20190825, end: 20190825
  5. SERTRALINE [Interacting]
     Active Substance: SERTRALINE HYDROCHLORIDE
     Indication: SUICIDE ATTEMPT
     Dosage: 500 MG, TOTAL
     Route: 048
     Dates: start: 20190825, end: 20190825
  6. AMLODIPINO [Concomitant]
     Active Substance: AMLODIPINE BESYLATE
     Indication: PRODUCT USED FOR UNKNOWN INDICATION
     Dosage: 5 MG, QD
     Route: 048
     Dates: start: 20110713

REACTIONS (6)
  - Depressed level of consciousness [Recovered/Resolved]
  - Hypokalaemia [Recovered/Resolved]
  - Alcohol interaction [Recovered/Resolved]
  - Hypotension [Recovered/Resolved]
  - Intentional overdose [Recovered/Resolved]
  - Oxygen saturation decreased [Recovered/Resolved]

NARRATIVE: CASE EVENT DATE: 20190825
